FAERS Safety Report 6849821-6 (Version None)
Quarter: 2010Q3

REPORT INFORMATION
  Report Type: 
  Country: None (occurrence: None)
  Receive Date: 20100716
  Receipt Date: 20071207
  Transmission Date: 20110219
  Serious: No
  Sender: FDA-Public Use
  Company Number: US-PFIZER INC-2007083884

PATIENT
  Sex: Female
  Weight: 57.2 kg

DRUGS (4)
  1. CHANTIX [Suspect]
     Indication: SMOKING CESSATION THERAPY
     Route: 048
     Dates: start: 20070930, end: 20071001
  2. LIPITOR [Concomitant]
     Route: 048
     Dates: start: 19970101
  3. ACETYLSALICYLIC ACID [Concomitant]
     Route: 048
  4. HYDROXYZINE [Concomitant]
     Route: 048

REACTIONS (1)
  - MALAISE [None]
